FAERS Safety Report 24915903 (Version 1)
Quarter: 2025Q1

REPORT INFORMATION
  Report Type: Spontaneous
  Country: US (occurrence: US)
  Receive Date: 20250203
  Receipt Date: 20250203
  Transmission Date: 20250409
  Serious: Yes (Other)
  Sender: AMGEN
  Company Number: US-AMGEN-USASP2025018076

PATIENT

DRUGS (2)
  1. AVSOLA [Suspect]
     Active Substance: INFLIXIMAB-AXXQ
     Indication: Product used for unknown indication
     Route: 065
  2. BIMZELX [Concomitant]
     Active Substance: BIMEKIZUMAB-BKZX
     Route: 065

REACTIONS (1)
  - Oesophageal candidiasis [Unknown]
